FAERS Safety Report 25621510 (Version 2)
Quarter: 2025Q3

REPORT INFORMATION
  Report Type: Spontaneous
  Country: US (occurrence: US)
  Receive Date: 20250730
  Receipt Date: 20250805
  Transmission Date: 20251020
  Serious: Yes (Death, Other)
  Sender: RANBAXY
  Company Number: US-SUN PHARMACEUTICAL INDUSTRIES INC-2025R1-519109

PATIENT
  Age: 4 Decade
  Sex: Male

DRUGS (5)
  1. PREDNISONE [Suspect]
     Active Substance: PREDNISONE
     Indication: Addison^s disease
     Dosage: 10 MILLIGRAM, DAILY
     Route: 065
  2. AMPHOTERICIN B [Suspect]
     Active Substance: AMPHOTERICIN B
     Indication: Leprosy
     Route: 065
  3. MINOCYCLINE [Suspect]
     Active Substance: MINOCYCLINE HYDROCHLORIDE
     Indication: Leprosy
     Dosage: 100 MILLIGRAM, DAILY
     Route: 065
  4. MOXIFLOXACIN [Concomitant]
     Active Substance: MOXIFLOXACIN
     Indication: Leprosy
     Dosage: 400 MILLIGRAM, DAILY
     Route: 065
  5. CLARITHROMYCIN [Concomitant]
     Active Substance: CLARITHROMYCIN
     Indication: Leprosy
     Dosage: 300 MILLIGRAM, DAILY
     Route: 065

REACTIONS (4)
  - Cardiac arrest [Fatal]
  - Condition aggravated [Unknown]
  - Haemophagocytic lymphohistiocytosis [Fatal]
  - Product dose omission issue [Unknown]
